FAERS Safety Report 10258149 (Version 1)
Quarter: 2014Q2

REPORT INFORMATION
  Report Type: Spontaneous
  Country: US (occurrence: US)
  Receive Date: 20140625
  Receipt Date: 20140625
  Transmission Date: 20141212
  Serious: No
  Sender: FDA-Public Use
  Company Number: US-PFIZER INC-2014172080

PATIENT
  Age: 88 Year
  Sex: Female
  Weight: 82.54 kg

DRUGS (8)
  1. ATORVASTATIN CALCIUM [Suspect]
     Indication: BLOOD CHOLESTEROL INCREASED
     Dosage: 40 MG, 1X/DAY
     Route: 048
     Dates: start: 2004, end: 20140604
  2. CELEBREX [Concomitant]
     Indication: ARTHRITIS
     Dosage: 200 MG, 1X/DAY
  3. LISINOPRIL [Concomitant]
     Indication: HYPERTENSION
     Dosage: 25 MG, 1X/DAY
  4. BABY ASPIRIN [Concomitant]
     Indication: CARDIOVASCULAR EVENT PROPHYLAXIS
     Dosage: UNK, 1X/DAY
  5. PILOCARPINE [Concomitant]
     Indication: GLAUCOMA
     Dosage: UNK, 3X/DAY
     Route: 047
  6. TIMOPTIC [Concomitant]
     Indication: GLAUCOMA
     Dosage: UNK, 2X/DAY
     Route: 047
  7. VITAMIN D3 [Concomitant]
     Dosage: 2000 MG, 2X/DAY
  8. HYDROCHLOROTHIAZIDE [Concomitant]
     Dosage: UNK

REACTIONS (6)
  - Pain [Not Recovered/Not Resolved]
  - Myalgia [Not Recovered/Not Resolved]
  - Myalgia [Not Recovered/Not Resolved]
  - Musculoskeletal stiffness [Not Recovered/Not Resolved]
  - Asthenia [Not Recovered/Not Resolved]
  - Drug hypersensitivity [Not Recovered/Not Resolved]
